FAERS Safety Report 16775263 (Version 7)
Quarter: 2020Q4

REPORT INFORMATION
  Report Type: Spontaneous
  Country: US (occurrence: US)
  Receive Date: 20190905
  Receipt Date: 20201223
  Transmission Date: 20210113
  Serious: Yes (Disabling)
  Sender: FDA-Public Use
  Company Number: US-AMERICAN REGENT INC-2019001876

PATIENT
  Age: 57 Year
  Sex: Male
  Weight: 112.83 kg

DRUGS (21)
  1. INJECTAFER [Suspect]
     Active Substance: FERRIC CARBOXYMALTOSE
     Dosage: 750 UNKNOWN, IN 250 0.9% SODIUM CHLORIDE SINGLE
     Route: 042
     Dates: start: 20161209, end: 20161209
  2. INJECTAFER [Suspect]
     Active Substance: FERRIC CARBOXYMALTOSE
     Dosage: 750 UNKNOWN, IN 50 0.9% SODIUM CHLORIDE SINGLE
     Route: 042
     Dates: start: 20180927, end: 20180927
  3. INJECTAFER [Suspect]
     Active Substance: FERRIC CARBOXYMALTOSE
     Dosage: 750 UNKNOWN, IN 250 0.9% SODIUM CHLORIDE, SINGLE
     Route: 042
     Dates: start: 20151228, end: 20151228
  4. FLOMAX [Concomitant]
     Active Substance: TAMSULOSIN HYDROCHLORIDE
     Indication: PRODUCT USED FOR UNKNOWN INDICATION
     Dosage: 0.4 MILLIGRAM, QD
     Route: 048
  5. IRON [Concomitant]
     Active Substance: IRON
     Indication: PRODUCT USED FOR UNKNOWN INDICATION
     Dosage: UNK
     Route: 065
     Dates: start: 20180209
  6. INJECTAFER [Suspect]
     Active Substance: FERRIC CARBOXYMALTOSE
     Dosage: 750 UNKNOWN, IN 250 0.9% SODIUM CHLORIDE SINGLE
     Route: 042
     Dates: start: 20160412, end: 20160412
  7. INJECTAFER [Suspect]
     Active Substance: FERRIC CARBOXYMALTOSE
     Dosage: 750 UNKNOWN, IN 250 0.9% SODIUM CHLORIDE SINGLE
     Route: 042
     Dates: start: 20170323, end: 20170323
  8. INJECTAFER [Suspect]
     Active Substance: FERRIC CARBOXYMALTOSE
     Dosage: 750 UNKNOWN, IN 50 0.9% SODIUM CHLORIDE SINGLE
     Route: 042
     Dates: start: 20180205, end: 20180205
  9. INJECTAFER [Suspect]
     Active Substance: FERRIC CARBOXYMALTOSE
     Dosage: 750 UNKNOWN, IN 50 0.9% SODIUM CHLORIDE SINGLE
     Route: 042
     Dates: start: 20180702, end: 20180702
  10. VITAMIN D                          /00107901/ [Concomitant]
     Active Substance: ERGOCALCIFEROL
     Indication: VITAMIN D DEFICIENCY
     Dosage: 50000 INTERNATIONAL UNIT WEEKLY
     Route: 048
     Dates: start: 2018, end: 2018
  11. INJECTAFER [Suspect]
     Active Substance: FERRIC CARBOXYMALTOSE
     Dosage: 750 UNKNOWN, SINGLE
     Route: 042
     Dates: start: 20151218, end: 20151218
  12. INJECTAFER [Suspect]
     Active Substance: FERRIC CARBOXYMALTOSE
     Dosage: 750 UNKNOWN, IN 250 0.9% SODIUM CHLORIDE SINGLE
     Route: 042
     Dates: start: 20160628, end: 20160628
  13. INJECTAFER [Suspect]
     Active Substance: FERRIC CARBOXYMALTOSE
     Dosage: 750 UNKNOWN, IN 50 0.9% SODIUM CHLORIDE SINGLE
     Route: 042
     Dates: start: 20180625, end: 20180625
  14. INJECTAFER [Suspect]
     Active Substance: FERRIC CARBOXYMALTOSE
     Indication: IRON DEFICIENCY ANAEMIA
     Dosage: 4 PER YEAR
     Route: 042
     Dates: start: 2014, end: 2014
  15. INJECTAFER [Suspect]
     Active Substance: FERRIC CARBOXYMALTOSE
     Dosage: 750 UNKNOWN, IN 250 0.9% SODIUM CHLORIDE SINGLE
     Route: 042
     Dates: start: 20160404, end: 20160404
  16. INJECTAFER [Suspect]
     Active Substance: FERRIC CARBOXYMALTOSE
     Dosage: 750 UNKNOWN, IN 250 0.9% SODIUM CHLORIDE SINGLE
     Route: 042
     Dates: start: 20161201, end: 20161201
  17. INJECTAFER [Suspect]
     Active Substance: FERRIC CARBOXYMALTOSE
     Dosage: 750 UNKNOWN, IN 250 0.9% SODIUM CHLORIDE SINGLE
     Route: 042
     Dates: start: 20170331, end: 20170331
  18. INJECTAFER [Suspect]
     Active Substance: FERRIC CARBOXYMALTOSE
     Dosage: 750 UNKNOWN, IN 250 0.9% SODIUM CHLORIDE SINGLE
     Route: 042
     Dates: start: 20171130, end: 20171130
  19. INJECTAFER [Suspect]
     Active Substance: FERRIC CARBOXYMALTOSE
     Dosage: 750 UNKNOWN, IN 100 0.9% SODIUM CHLORIDE, SINGLE
     Route: 042
     Dates: start: 20160621, end: 20160621
  20. INJECTAFER [Suspect]
     Active Substance: FERRIC CARBOXYMALTOSE
     Dosage: 750 UNKNOWN, IN 250 0.9% SODIUM CHLORIDE SINGLE
     Route: 042
     Dates: start: 20171106, end: 20171106
  21. INJECTAFER [Suspect]
     Active Substance: FERRIC CARBOXYMALTOSE
     Dosage: 750 UNKNOWN, IN 50 0.9% SODIUM CHLORIDE SINGLE
     Route: 042
     Dates: start: 20180212, end: 20180212

REACTIONS (13)
  - Pain [Not Recovered/Not Resolved]
  - Bone deformity [Not Recovered/Not Resolved]
  - Anhedonia [Not Recovered/Not Resolved]
  - Emotional distress [Not Recovered/Not Resolved]
  - Anxiety [Not Recovered/Not Resolved]
  - Product quality issue [Unknown]
  - Fracture [Not Recovered/Not Resolved]
  - Muscle atrophy [Not Recovered/Not Resolved]
  - Osteomalacia [Not Recovered/Not Resolved]
  - Stress fracture [Not Recovered/Not Resolved]
  - Gait disturbance [Not Recovered/Not Resolved]
  - Impaired self-care [Not Recovered/Not Resolved]
  - Hypophosphataemia [Not Recovered/Not Resolved]

NARRATIVE: CASE EVENT DATE: 20181009
